FAERS Safety Report 26143739 (Version 1)
Quarter: 2025Q4

REPORT INFORMATION
  Report Type: Report from Study
  Country: US (occurrence: US)
  Receive Date: 20251211
  Receipt Date: 20251211
  Transmission Date: 20260117
  Serious: Yes (Hospitalization, Other)
  Sender: ALEXION PHARMACEUTICALS
  Company Number: US-AstraZeneca-CH-01010376A

PATIENT
  Age: 40 Year
  Sex: Female

DRUGS (1)
  1. SOLIRIS [Suspect]
     Active Substance: ECULIZUMAB
     Indication: Myasthenia gravis
     Dosage: UNK
     Route: 065

REACTIONS (9)
  - Malaise [Unknown]
  - Pyrexia [Unknown]
  - Pain [Unknown]
  - Dizziness [Unknown]
  - Cranial nerve disorder [Unknown]
  - Fall [Unknown]
  - Migraine [Unknown]
  - Back pain [Unknown]
  - Infection [Unknown]

NARRATIVE: CASE EVENT DATE: 20251001
